FAERS Safety Report 14797953 (Version 4)
Quarter: 2018Q3

REPORT INFORMATION
  Report Type: Report from Study
  Country: HU (occurrence: HU)
  Receive Date: 20180424
  Receipt Date: 20180810
  Transmission Date: 20181010
  Serious: Yes (Other)
  Sender: FDA-Public Use
  Company Number: HU-TEVA-2018-HU-885638

PATIENT
  Age: 76 Year
  Sex: Female
  Weight: 64 kg

DRUGS (8)
  1. ULTIBRO BREEZHALER [Suspect]
     Active Substance: GLYCOPYRRONIUM\INDACATEROL
     Indication: CHRONIC OBSTRUCTIVE PULMONARY DISEASE
     Dosage: 1 DOSAGE FORMS DAILY; 1 DF, QD
     Route: 055
     Dates: start: 20170920
  2. MODUXIN [Concomitant]
     Dosage: UNK
     Route: 065
  3. CAVINTON [Concomitant]
     Active Substance: VINPOCETINE
     Dosage: UNK
     Route: 065
  4. PANTOPRAZOLE [Suspect]
     Active Substance: PANTOPRAZOLE
     Indication: PRODUCT USED FOR UNKNOWN INDICATION
     Dosage: UNK
     Route: 065
  5. ACETYLSALICYLIC ACID [Suspect]
     Active Substance: ASPIRIN
     Indication: PRODUCT USED FOR UNKNOWN INDICATION
     Dosage: UNK
     Route: 065
  6. LAPIDEN [Concomitant]
     Active Substance: INDAPAMIDE
     Dosage: UNK
     Route: 065
  7. TANYDON [Concomitant]
     Dosage: UNK
     Route: 065
  8. VENTOLIN [Concomitant]
     Active Substance: ALBUTEROL SULFATE
     Dosage: UNK
     Route: 065
     Dates: start: 20170920

REACTIONS (6)
  - Urinary tract infection bacterial [Unknown]
  - Diarrhoea [Recovered/Resolved]
  - Peripheral artery occlusion [Unknown]
  - Myocardial ischaemia [Unknown]
  - Dyspnoea exertional [Unknown]
  - Mobility decreased [Unknown]

NARRATIVE: CASE EVENT DATE: 2000
